FAERS Safety Report 4914745-8 (Version None)
Quarter: 2006Q1

REPORT INFORMATION
  Report Type: 
  Country: None (occurrence: None)
  Receive Date: 20060216
  Receipt Date: 20050930
  Transmission Date: 20060701
  Serious: Yes (Death, Hospitalization)
  Sender: FDA-Public Use
  Company Number: US-MERCK-0510USA00848

PATIENT
  Age: 80 Year
  Sex: Female

DRUGS (1)
  1. VIOXX [Suspect]
     Indication: PAIN
     Route: 048
     Dates: start: 20000101, end: 20000101

REACTIONS (4)
  - BLOOD PRESSURE [None]
  - CEREBROVASCULAR ACCIDENT [None]
  - DEATH [None]
  - FATIGUE [None]
